FAERS Safety Report 6126434-5 (Version None)
Quarter: 2009Q1

REPORT INFORMATION
  Report Type: 
  Country: None (occurrence: None)
  Receive Date: 20090320
  Receipt Date: 20090309
  Transmission Date: 20090719
  Serious: Yes (Other)
  Sender: FDA-Public Use
  Company Number: CA-ELI_LILLY_AND_COMPANY-CA200903002294

PATIENT
  Age: 19 Year
  Sex: Male

DRUGS (5)
  1. CYMBALTA [Suspect]
     Indication: DEPRESSION
     Dosage: 60 MG, DAILY (1/D)
     Dates: start: 20090101
  2. PERCOCET [Concomitant]
  3. TYLENOL WITH CODEIN #3 [Concomitant]
  4. MINOCYCLINE HCL [Concomitant]
  5. NASACORT [Concomitant]

REACTIONS (4)
  - AFFECT LABILITY [None]
  - ANXIETY [None]
  - CRYING [None]
  - HERNIA REPAIR [None]
